FAERS Safety Report 10176552 (Version 1)
Quarter: 2014Q2

REPORT INFORMATION
  Report Type: Spontaneous
  Country: US (occurrence: US)
  Receive Date: 20140516
  Receipt Date: 20140516
  Transmission Date: 20141212
  Serious: Yes (Hospitalization)
  Sender: FDA-Public Use
  Company Number: US-TEVA-481287USA

PATIENT
  Age: 41 Year
  Sex: Female

DRUGS (1)
  1. CLARAVIS [Suspect]
     Dates: start: 20131104, end: 20140114

REACTIONS (1)
  - Pulmonary embolism [Unknown]
